FAERS Safety Report 6538979-4 (Version None)
Quarter: 2010Q1

REPORT INFORMATION
  Report Type: 
  Country: None (occurrence: None)
  Receive Date: 20100115
  Receipt Date: 20100114
  Transmission Date: 20100710
  Serious: Yes (Hospitalization)
  Sender: FDA-Public Use
  Company Number: FR-SANOFI-AVENTIS-2010SA002145

PATIENT
  Age: 77 Year
  Sex: Male

DRUGS (6)
  1. STILNOX [Suspect]
     Indication: INSOMNIA
     Route: 048
  2. ARICEPT [Suspect]
     Route: 048
     Dates: end: 20090410
  3. VERATRAN [Suspect]
     Route: 048
  4. LERCAN [Suspect]
     Route: 048
  5. TAMSULOSIN HCL [Concomitant]
     Route: 048
  6. PREVISCAN [Concomitant]
     Route: 048

REACTIONS (3)
  - BRADYCARDIA [None]
  - DIZZINESS [None]
  - SOMNOLENCE [None]
